FAERS Safety Report 7080294-7 (Version None)
Quarter: 2010Q4

REPORT INFORMATION
  Report Type: 
  Country: None (occurrence: None)
  Receive Date: 20101022
  Receipt Date: 20101019
  Transmission Date: 20110411
  Serious: Yes (Hospitalization, Other)
  Sender: FDA-Public Use
  Company Number: CL-257-2010

PATIENT
  Age: 70 Year
  Sex: Female

DRUGS (1)
  1. KETOROLAC UNK [Suspect]
     Dosage: INTRAMUSCULAR
     Route: 030

REACTIONS (1)
  - EMBOLIA CUTIS MEDICAMENTOSA [None]
